FAERS Safety Report 4304310-8 (Version None)
Quarter: 2004Q1

REPORT INFORMATION
  Report Type: 
  Country: None (occurrence: None)
  Receive Date: 20040223
  Receipt Date: 20040212
  Transmission Date: 20041129
  Serious: Yes (Hospitalization, Other)
  Sender: FDA-Public Use
  Company Number: HQWYE959012FEB04

PATIENT
  Age: 66 Year
  Sex: Female

DRUGS (3)
  1. PROPRANOLOL HCL [Suspect]
     Indication: TACHYCARDIA
     Dosage: 10 MG 1X PER 1 DAY, ORAL
     Route: 048
  2. CEFAZOLIN SODIUM [Suspect]
     Indication: PROPHYLACTIC CHEMOTHERAPY
     Dosage: 1 G ONCE, INTRAVENOUS
     Route: 042
     Dates: start: 20031129, end: 20031130
  3. MEPIVACAINE HCL [Suspect]
     Indication: PARAESTHESIA
     Dosage: 8 ML ONCE, INTRAVENOUS
     Route: 042
     Dates: start: 20031129, end: 20031129

REACTIONS (3)
  - DRUG INEFFECTIVE [None]
  - HYPERTENSION [None]
  - PROCEDURAL COMPLICATION [None]
